FAERS Safety Report 9220078 (Version 4)
Quarter: 2013Q2

REPORT INFORMATION
  Report Type: Spontaneous
  Country: FR (occurrence: None)
  Receive Date: 20130405
  Receipt Date: 20130528
  Transmission Date: 20140414
  Serious: Yes (Life-Threatening, Hospitalization)
  Sender: FDA-Public Use
  Company Number: 2013-0536

PATIENT
  Age: 58 Year
  Sex: Male
  Weight: 72 kg

DRUGS (8)
  1. CARFILZOMIB [Suspect]
     Indication: PLASMA CELL MYELOMA
     Dosage: 10.8571 MG (38 MG, DAYS 1, 2)
     Route: 042
     Dates: start: 20111026, end: 20111027
  2. LENALIDOMIDE (LENALIDOMIDE) (CAPSULE) (LENALIDOMIDE) [Suspect]
     Indication: PLASMA CELL MYELOMA
     Dosage: 18.75 MG (25 MG, DAYS 1-21, EVERY 28 DAYS)
     Route: 048
     Dates: start: 20111026, end: 20120519
  3. DEXAMETHASONE (DEXAMETHASONE) (DEXAMETHASONE) [Suspect]
     Indication: PLASMA CELL MYELOMA
     Dosage: 1.1429 MG (8 MG, DAYS 1, 8, 15, 22, EVERY 28 DAYS)
     Dates: start: 20111026, end: 20120111
  4. CRESTOR (ROSUVASTATIN CALCIUM) (ROSUVASTATIN CALCIUM) [Concomitant]
  5. INEXIUM (ESOMEPRAZOLE MAGNESIUM) (ESOMEPRAZOLE MAGNESIUM) [Concomitant]
  6. KARDEGIC (ACETYLSALICYLATE LYSINE) (ACETYLSALICYLATE LYSINE) [Concomitant]
  7. VALACYCLOVIR (VALACICLOVIR HYDROCHLORIDE) (VALACICLOVIR HYDROCHLORIDE) [Concomitant]
  8. VITAMIN D (ERGOCALCIFEROL) (ERGOCALCIFEROL) [Concomitant]

REACTIONS (5)
  - Peritonitis [None]
  - Large intestine perforation [None]
  - Abdominal infection [None]
  - Abdominal abscess [None]
  - Gastrointestinal ulcer [None]
